FAERS Safety Report 10048947 (Version 1)
Quarter: 2014Q1

REPORT INFORMATION
  Report Type: Spontaneous
  Country: BM (occurrence: BM)
  Receive Date: 20140331
  Receipt Date: 20140331
  Transmission Date: 20141002
  Serious: Yes (Other)
  Sender: FDA-Public Use
  Company Number: BM-ASTRAZENECA-2014SE20349

PATIENT
  Sex: 0

DRUGS (4)
  1. BUPIVACAINE [Suspect]
     Route: 064
  2. BUPIVACAINE [Suspect]
     Route: 064
  3. LIDOCAINE [Concomitant]
     Route: 064
  4. FENTANYL [Concomitant]
     Dosage: 100 UG IN 6 ML
     Route: 064

REACTIONS (1)
  - Foetal heart rate deceleration abnormality [Recovered/Resolved]
